FAERS Safety Report 16831692 (Version 1)
Quarter: 2019Q3

REPORT INFORMATION
  Report Type: Spontaneous
  Country: ES (occurrence: ES)
  Receive Date: 20190920
  Receipt Date: 20190920
  Transmission Date: 20191005
  Serious: Yes (Other)
  Sender: FDA-Public Use
  Company Number: ES-TEVA-2019-ES-1109906

PATIENT
  Age: 62 Year
  Sex: Female

DRUGS (1)
  1. AMOXICILINA + ACIDO CLAVULANICO [Suspect]
     Active Substance: AMOXICILLIN\CLAVULANIC ACID
     Indication: TOOTH ABSCESS
     Dosage: 2000 MG PER DAY
     Route: 048
     Dates: start: 20190524, end: 20190606

REACTIONS (3)
  - Dysphonia [Recovered/Resolved]
  - Tongue oedema [Recovered/Resolved]
  - Dysphagia [Recovered/Resolved]

NARRATIVE: CASE EVENT DATE: 20190606
